FAERS Safety Report 8495027-7 (Version None)
Quarter: 2012Q3

REPORT INFORMATION
  Report Type: 
  Country: None (occurrence: None)
  Receive Date: 20120709
  Receipt Date: 20120629
  Transmission Date: 20120928
  Serious: Yes (Hospitalization, Other)
  Sender: FDA-Public Use
  Company Number: PHHY2011FR55915

PATIENT
  Sex: Male

DRUGS (5)
  1. TASIGNA [Suspect]
     Indication: CHRONIC MYELOID LEUKAEMIA
     Dosage: 400 MG,
     Route: 048
     Dates: start: 20060801, end: 20110601
  2. STEROIDS NOS [Concomitant]
  3. ATORVASTATIN [Concomitant]
     Dosage: 20 MG, Q5H
  4. TASIGNA [Suspect]
     Dosage: UNK
     Dates: start: 20110611
  5. LERCANIDIPINE [Concomitant]
     Indication: HYPERTENSION
     Dosage: 20 MG, QD
     Route: 048

REACTIONS (27)
  - VISION BLURRED [None]
  - CEREBROVASCULAR ACCIDENT [None]
  - SINUS TACHYCARDIA [None]
  - CAROTID ARTERY THROMBOSIS [None]
  - MUSCULOSKELETAL PAIN [None]
  - FATIGUE [None]
  - ATAXIA [None]
  - HYPOAESTHESIA [None]
  - GAIT DISTURBANCE [None]
  - NECK PAIN [None]
  - INDURATION [None]
  - AGRAPHIA [None]
  - NODAL ARRHYTHMIA [None]
  - AMAUROSIS FUGAX [None]
  - HYPERTENSION [None]
  - OPTIC ISCHAEMIC NEUROPATHY [None]
  - ALEXIA [None]
  - ANXIETY [None]
  - DEPRESSION [None]
  - HYPOGAMMAGLOBULINAEMIA [None]
  - HEADACHE [None]
  - CAROTID ARTERY STENOSIS [None]
  - INTERMITTENT CLAUDICATION [None]
  - TEMPORAL ARTERITIS [None]
  - RETINAL EXUDATES [None]
  - VERTIGO [None]
  - HAEMOGLOBIN DECREASED [None]
